FAERS Safety Report 10549349 (Version 1)
Quarter: 2014Q4

REPORT INFORMATION
  Report Type: Spontaneous
  Country: US (occurrence: None)
  Receive Date: 20141016
  Receipt Date: 20141016
  Transmission Date: 20150529
  Serious: No
  Sender: FDA-Public Use
  Company Number: CABO-14004526

PATIENT
  Age: 76 Year
  Sex: Male

DRUGS (1)
  1. COMETRIQ [Suspect]
     Active Substance: CABOZANTINIB S-MALATE
     Indication: RENAL CANCER
     Route: 048
     Dates: start: 20140713, end: 201407

REACTIONS (5)
  - Off label use [None]
  - Dizziness [None]
  - Oedema peripheral [None]
  - Fall [None]
  - Malaise [None]

NARRATIVE: CASE EVENT DATE: 2014
